FAERS Safety Report 4515848-2 (Version None)
Quarter: 2004Q4

REPORT INFORMATION
  Report Type: 
  Country: None (occurrence: None)
  Receive Date: 20041001
  Receipt Date: 20030827
  Transmission Date: 20050328
  Serious: Yes (Hospitalization)
  Sender: FDA-Public Use
  Company Number: TPA2003A01029

PATIENT
  Age: 65 Year
  Sex: Female
  Weight: 112.4921 kg

DRUGS (5)
  1. ACTOS [Suspect]
     Indication: DIABETES MELLITUS NON-INSULIN-DEPENDENT
     Dosage: 30 MG, 1 IN 1 D, PER ORAL
     Route: 048
     Dates: start: 20021202, end: 20030501
  2. GLUCOTROL XL (GLIPIZIDE) (10 MILLIGRAM) [Concomitant]
  3. FUROSEMIDE [Concomitant]
  4. LEVOXYL [Concomitant]
  5. LIPITOR [Concomitant]

REACTIONS (14)
  - ABDOMINAL PAIN UPPER [None]
  - BACK PAIN [None]
  - BLOOD GLUCOSE INCREASED [None]
  - CARDIAC FAILURE [None]
  - CHEST PAIN [None]
  - DIZZINESS [None]
  - DYSPNOEA [None]
  - FEELING OF BODY TEMPERATURE CHANGE [None]
  - FLUID OVERLOAD [None]
  - HEADACHE [None]
  - KIDNEY INFECTION [None]
  - OBESITY [None]
  - PRURITUS [None]
  - WEIGHT INCREASED [None]
